FAERS Safety Report 8156848-3 (Version None)
Quarter: 2012Q1

REPORT INFORMATION
  Report Type: 
  Country: None (occurrence: None)
  Receive Date: 20120222
  Receipt Date: 20120215
  Transmission Date: 20120608
  Serious: Yes (Hospitalization, Congenital Anomaly)
  Sender: FDA-Public Use
  Company Number: US-GLAXOSMITHKLINE-A0964002A

PATIENT
  Sex: Male

DRUGS (10)
  1. NEURONTIN [Concomitant]
     Dates: end: 20000101
  2. DEPAKOTE [Concomitant]
     Dates: end: 20000801
  3. TIGAN [Concomitant]
  4. REGLAN [Concomitant]
  5. FOLIC ACID [Concomitant]
     Dates: start: 20000825
  6. PAXIL [Suspect]
     Indication: AFFECTIVE DISORDER
     Dosage: 20MG PER DAY
     Route: 064
  7. COMPAZINE [Concomitant]
  8. ZOFRAN [Concomitant]
  9. TRAZODONE HYDROCHLORIDE [Concomitant]
  10. VERAPAMIL [Concomitant]
     Dates: end: 20000101

REACTIONS (3)
  - CLEFT LIP AND PALATE [None]
  - FOOT DEFORMITY [None]
  - FOETAL EXPOSURE DURING PREGNANCY [None]
